FAERS Safety Report 7795476-6 (Version None)
Quarter: 2011Q4

REPORT INFORMATION
  Report Type: 
  Country: None (occurrence: None)
  Receive Date: 20111004
  Receipt Date: 20110929
  Transmission Date: 20120403
  Serious: Yes (Disabling)
  Sender: FDA-Public Use
  Company Number: US-MERCK-1110USA00189

PATIENT
  Sex: Female

DRUGS (8)
  1. FOSAMAX [Suspect]
     Route: 048
     Dates: start: 20050101, end: 20100101
  2. FOSAMAX [Suspect]
     Route: 048
     Dates: start: 20080101, end: 20100101
  3. FOSAMAX [Suspect]
     Indication: OSTEOPOROSIS PROPHYLAXIS
     Route: 048
     Dates: start: 19990101, end: 20080101
  4. FOSAMAX [Suspect]
     Route: 048
     Dates: start: 20050101, end: 20100101
  5. FOSAMAX [Suspect]
     Indication: OSTEOPOROSIS
     Route: 048
     Dates: start: 19990101, end: 20080101
  6. FOSAMAX [Suspect]
     Route: 048
     Dates: start: 20050101, end: 20100101
  7. FOSAMAX [Suspect]
     Route: 048
     Dates: start: 20050101, end: 20100101
  8. FOSAMAX [Suspect]
     Route: 048
     Dates: start: 20080101, end: 20100101

REACTIONS (2)
  - LOW TURNOVER OSTEOPATHY [None]
  - FEMUR FRACTURE [None]
